FAERS Safety Report 9511497 (Version 1)
Quarter: 2013Q3

REPORT INFORMATION
  Report Type: Spontaneous
  Country: US (occurrence: None)
  Receive Date: 20130906
  Receipt Date: 20130906
  Transmission Date: 20140515
  Serious: Yes (Other)
  Sender: FDA-Public Use
  Company Number: 20130464

PATIENT
  Age: 52 Year
  Sex: Female

DRUGS (6)
  1. PHENYTOIN SODIUM INJECTION (40042-009-02) 50 [Suspect]
     Indication: STATUS EPILEPTICUS
     Route: 042
  2. FLUCONAZOLE [Suspect]
  3. FOSPHENYTOIN SODIUM INJECTION, USP (025-21) (FOSPHENYTOIN SODIUM) [Concomitant]
  4. TACROLIMUS [Concomitant]
  5. MEROPENEM [Concomitant]
  6. VANCOMYCIN [Concomitant]

REACTIONS (7)
  - Electrocardiogram QRS complex prolonged [None]
  - Electrocardiogram QT prolonged [None]
  - Drug interaction [None]
  - Status epilepticus [None]
  - Haemodialysis [None]
  - Tachycardia [None]
  - Toxicity to various agents [None]
